FAERS Safety Report 9472192 (Version 3)
Quarter: 2013Q3

REPORT INFORMATION
  Report Type: Spontaneous
  Country: DE (occurrence: DE)
  Receive Date: 20130823
  Receipt Date: 20130830
  Transmission Date: 20140515
  Serious: Yes (Hospitalization)
  Sender: FDA-Public Use
  Company Number: DE-JNJFOC-20130517963

PATIENT
  Age: 71 Year
  Sex: Male
  Weight: 69 kg

DRUGS (9)
  1. XARELTO [Suspect]
     Indication: ATRIAL FIBRILLATION
     Route: 048
     Dates: start: 20130703
  2. XARELTO [Suspect]
     Indication: ATRIAL FIBRILLATION
     Route: 048
     Dates: start: 20120428, end: 20130307
  3. XARELTO [Suspect]
     Indication: CEREBROVASCULAR ACCIDENT PROPHYLAXIS
     Route: 048
     Dates: start: 20120428, end: 20130307
  4. XARELTO [Suspect]
     Indication: CEREBROVASCULAR ACCIDENT PROPHYLAXIS
     Route: 048
     Dates: start: 20130703
  5. KEPPRA [Concomitant]
     Route: 065
     Dates: start: 2011
  6. ZONEGRAN [Concomitant]
     Route: 065
     Dates: start: 2011
  7. PANTOPRAZOLE [Concomitant]
     Route: 065
     Dates: start: 2011
  8. RAMIPRIL [Concomitant]
     Route: 065
     Dates: start: 2011
  9. FUROSEMID [Concomitant]
     Route: 065
     Dates: start: 2011

REACTIONS (4)
  - Brain stem haemorrhage [Unknown]
  - Grand mal convulsion [Recovered/Resolved]
  - Postictal state [Recovered/Resolved]
  - Personality change [Recovered/Resolved]
